FAERS Safety Report 18624107 (Version 5)
Quarter: 2024Q4

REPORT INFORMATION
  Report Type: Spontaneous
  Country: US (occurrence: US)
  Receive Date: 20201216
  Receipt Date: 20241029
  Transmission Date: 20250115
  Serious: Yes (Other)
  Sender: PFIZER
  Company Number: US-PFIZER INC-2020495295

PATIENT
  Age: 61 Year
  Sex: Female

DRUGS (1)
  1. XELJANZ XR [Suspect]
     Active Substance: TOFACITINIB CITRATE
     Dosage: 11 MG, DAILY (TAKE 1 TABLET BY MOUTH EVERY DAY)
     Route: 048

REACTIONS (5)
  - Rheumatoid arthritis [Unknown]
  - Rash pruritic [Unknown]
  - COVID-19 [Unknown]
  - Gait disturbance [Unknown]
  - Accident [Unknown]

NARRATIVE: CASE EVENT DATE: 20240919
